FAERS Safety Report 16707924 (Version 7)
Quarter: 2020Q3

REPORT INFORMATION
  Report Type: Report from Study
  Country: US (occurrence: US)
  Receive Date: 20190815
  Receipt Date: 20200717
  Transmission Date: 20201102
  Serious: Yes (Hospitalization, Other)
  Sender: FDA-Public Use
  Company Number: US-ACTELION-A-US2019-194167

PATIENT
  Age: 74 Year
  Sex: Female
  Weight: 74.83 kg

DRUGS (9)
  1. MUCINEX [Concomitant]
     Active Substance: GUAIFENESIN
  2. UPTRAVI [Suspect]
     Active Substance: SELEXIPAG
     Dosage: 400 MCG, BID
     Route: 048
  3. SILDENAFIL. [Concomitant]
     Active Substance: SILDENAFIL
  4. UPTRAVI [Suspect]
     Active Substance: SELEXIPAG
     Dosage: 200 MCG, BID
     Route: 048
  5. OPSUMIT [Suspect]
     Active Substance: MACITENTAN
     Indication: PULMONARY ARTERIAL HYPERTENSION
     Dosage: 10 MG, QD
     Route: 048
     Dates: start: 20170525
  6. ADEMPAS [Concomitant]
     Active Substance: RIOCIGUAT
     Dosage: UNK
  7. UPTRAVI [Suspect]
     Active Substance: SELEXIPAG
     Indication: PULMONARY ARTERIAL HYPERTENSION
     Dosage: 800 MCG, BID
     Route: 048
  8. AMLODIPINE [Concomitant]
     Active Substance: AMLODIPINE BESYLATE
  9. SPIRONOLACTON [Concomitant]
     Active Substance: SPIRONOLACTONE

REACTIONS (13)
  - Nausea [Unknown]
  - Vomiting [Unknown]
  - Diarrhoea [Unknown]
  - Decreased appetite [Unknown]
  - Pulmonary arterial hypertension [Unknown]
  - Cardiac failure congestive [Unknown]
  - Living in residential institution [Unknown]
  - Constipation [Unknown]
  - Vaginal prolapse [Unknown]
  - Headache [Unknown]
  - Epistaxis [Unknown]
  - Cardiac failure chronic [Unknown]
  - Dehydration [Not Recovered/Not Resolved]

NARRATIVE: CASE EVENT DATE: 20190801
